FAERS Safety Report 8957515 (Version 2)
Quarter: 2013Q1

REPORT INFORMATION
  Report Type: Spontaneous
  Country: BR (occurrence: BR)
  Receive Date: 20121210
  Receipt Date: 20130102
  Transmission Date: 20140127
  Serious: Yes (Other)
  Sender: FDA-Public Use
  Company Number: BR-PFIZER INC-2012306524

PATIENT
  Age: 62 Year
  Sex: Female

DRUGS (5)
  1. FRONTAL [Suspect]
     Indication: DEPRESSION
     Dosage: 0.5 MG, 2X/DAY
     Route: 048
  2. FRONTAL [Suspect]
     Indication: ANXIETY
  3. FLUOXETINE [Concomitant]
     Indication: DEPRESSION
     Dosage: 20 MG, 2X/DAY
     Dates: start: 2002
  4. CITALOR [Suspect]
     Indication: BLOOD CHOLESTEROL ABNORMAL
     Dosage: 10 MG, 1X/DAY
  5. MODURETIC [Suspect]
     Indication: FLUID RETENTION
     Dosage: [AMILORIDE 50 MG/HYDROCHLOROTHIAZIDE 5 MG]

REACTIONS (3)
  - Spinal disorder [Unknown]
  - Intervertebral disc protrusion [Unknown]
  - Glucose tolerance impaired [Unknown]
